FAERS Safety Report 9469897 (Version 3)
Quarter: 2013Q4

REPORT INFORMATION
  Report Type: Spontaneous
  Country: JP (occurrence: JP)
  Receive Date: 20130822
  Receipt Date: 20131011
  Transmission Date: 20140711
  Serious: Yes (Other)
  Sender: FDA-Public Use
  Company Number: JP-NAPPMUNDI-GBR-2013-0015311

PATIENT
  Sex: Female

DRUGS (3)
  1. OXYCODONE HYDROCHLORIDE [Suspect]
     Indication: CANCER PAIN
     Dosage: 300 MG, DAILY
     Route: 042
  2. MORPHINE HYDROCHLORIDE [Suspect]
     Indication: CANCER PAIN
     Route: 042
  3. FENTANYL [Suspect]
     Indication: CANCER PAIN

REACTIONS (1)
  - Delirium [Not Recovered/Not Resolved]
